FAERS Safety Report 8340580-7 (Version None)
Quarter: 2012Q1

REPORT INFORMATION
  Report Type: 
  Country: None (occurrence: None)
  Receive Date: 20120329
  Receipt Date: 20091102
  Transmission Date: 20120608
  Serious: Yes (Hospitalization)
  Sender: FDA-Public Use
  Company Number: PHEH2009US10919

PATIENT
  Sex: Male

DRUGS (8)
  1. LASIX [Concomitant]
  2. ASPIRIN [Concomitant]
  3. EXELON [Suspect]
     Indication: DEMENTIA ALZHEIMER'S TYPE
     Dosage: 4.6 MG, TRANSDERMAL, 9.5 MG, TRANSDERMAL
     Route: 062
     Dates: start: 20090722
  4. EXELON [Suspect]
     Indication: DEMENTIA ALZHEIMER'S TYPE
     Dosage: 4.6 MG, TRANSDERMAL, 9.5 MG, TRANSDERMAL
     Route: 062
     Dates: end: 20091008
  5. DIGOXIN [Concomitant]
  6. EFEXOR XR (VENLAFAXINE) [Concomitant]
  7. LIPITOR /NET/ (ATORVASTATIN CALCIUM) LASIX (FUROSEMIDE) [Concomitant]
  8. WARFARIN SODIUM [Concomitant]

REACTIONS (3)
  - GASTRITIS [None]
  - UPPER GASTROINTESTINAL HAEMORRHAGE [None]
  - DRUG INEFFECTIVE [None]
